FAERS Safety Report 19935912 (Version 1)
Quarter: 2021Q4

REPORT INFORMATION
  Report Type: Spontaneous
  Country: JP (occurrence: JP)
  Receive Date: 20211008
  Receipt Date: 20211008
  Transmission Date: 20220303
  Serious: Yes (Other)
  Sender: FDA-Public Use
  Company Number: JP-BAYER-2018-213233

PATIENT
  Age: 5 Decade
  Sex: Male

DRUGS (6)
  1. STIVARGA [Suspect]
     Active Substance: REGORAFENIB
     Indication: Colon cancer
     Dosage: DAILY DOSE 120 MG
     Route: 048
     Dates: start: 201701, end: 201701
  2. STIVARGA [Suspect]
     Active Substance: REGORAFENIB
     Indication: Colon cancer
     Dosage: DAILY DOSE 80 MG
     Route: 048
     Dates: start: 201701, end: 201701
  3. STIVARGA [Suspect]
     Active Substance: REGORAFENIB
     Indication: Colon cancer
     Dosage: DAILY DOSE 80 MG
     Route: 048
     Dates: start: 201702, end: 201702
  4. STIVARGA [Suspect]
     Active Substance: REGORAFENIB
     Indication: Colon cancer
     Dosage: DAILY DOSE 80 MG
     Route: 048
     Dates: start: 201703, end: 201703
  5. STIVARGA [Suspect]
     Active Substance: REGORAFENIB
     Indication: Colon cancer
     Dosage: DAILY DOSE 80 MG
     Route: 048
     Dates: start: 201704, end: 201704
  6. STIVARGA [Suspect]
     Active Substance: REGORAFENIB
     Indication: Colon cancer
     Dosage: DAILY DOSE 80 MG
     Route: 048
     Dates: start: 201705, end: 201705

REACTIONS (12)
  - Tumour cavitation [None]
  - Protein urine present [Recovered/Resolved]
  - Protein urine present [Recovered/Resolved]
  - Protein urine present [Recovered/Resolved]
  - Hypertension [Recovering/Resolving]
  - Hypertension [Recovering/Resolving]
  - Palmar-plantar erythrodysaesthesia syndrome [Recovered/Resolved]
  - Palmar-plantar erythrodysaesthesia syndrome [Recovered/Resolved]
  - Palmar-plantar erythrodysaesthesia syndrome [Recovered/Resolved]
  - Palmar-plantar erythrodysaesthesia syndrome [Recovered/Resolved]
  - Palmar-plantar erythrodysaesthesia syndrome [Recovered/Resolved]
  - Off label use [None]

NARRATIVE: CASE EVENT DATE: 20170101
